FAERS Safety Report 9079272 (Version 2)
Quarter: 2013Q1

REPORT INFORMATION
  Report Type: Report from Study
  Country: DE (occurrence: DE)
  Receive Date: 20130130
  Receipt Date: 20130226
  Transmission Date: 20140127
  Serious: Yes (Hospitalization, Other)
  Sender: FDA-Public Use
  Company Number: DE-OTSUKA-EU-2012-10029

PATIENT
  Sex: Male
  Weight: 80 kg

DRUGS (22)
  1. SAMSCA [Suspect]
     Indication: INAPPROPRIATE ANTIDIURETIC HORMONE SECRETION
     Dosage: 7.5 MG MILLIGRAM(S), DAILY DOSE
     Route: 048
     Dates: start: 20120103, end: 20120104
  2. SAMSCA [Suspect]
     Dosage: 7.5 MG MILLIGRAM(S), DAILY DOSE
     Route: 048
     Dates: start: 20120109, end: 20120113
  3. SAMSCA [Suspect]
     Dosage: 15 MG MILLIGRAM(S), DAILY DOSE
     Route: 048
     Dates: start: 20120114, end: 20120114
  4. SAMSCA [Suspect]
     Dosage: 30 MG MILLIGRAM(S), DAILY DOSE
     Route: 048
     Dates: start: 20120115, end: 20120120
  5. SAMSCA [Suspect]
     Dosage: 15 MG MILLIGRAM(S), DAILY DOSE
     Route: 048
     Dates: start: 20120131, end: 20120201
  6. SAMSCA [Suspect]
     Dosage: 15 MG MILLIGRAM(S), DAILY DOSE
     Route: 048
     Dates: start: 20120226, end: 20120226
  7. METFORMIN [Concomitant]
     Indication: TYPE 2 DIABETES MELLITUS
     Dosage: 1700 MG MILLIGRAM(S), DAILY DOSE
     Route: 048
     Dates: start: 20120103, end: 20120422
  8. GLIMEPIRID [Concomitant]
     Indication: TYPE 2 DIABETES MELLITUS
     Dosage: 6 MG MILLIGRAM(S), DAILY DOSE
     Route: 048
     Dates: start: 20120103, end: 20120422
  9. BISOPROLOL [Concomitant]
     Indication: HYPERTENSION
     Dosage: 2.5 MG MILLIGRAM(S), DAILY DOSE
     Route: 048
     Dates: start: 20120103, end: 201202
  10. BISOPROLOL [Concomitant]
     Dosage: 10 MG MILLIGRAM(S), DAILY DOSE
     Route: 048
     Dates: start: 201202
  11. TAZOBACTAM [Concomitant]
     Indication: BRONCHOPNEUMONIA
     Dosage: 13.5 G GRAM(S), DAILY DOSE
     Route: 042
     Dates: start: 201201, end: 201201
  12. TAZOBACTAM [Concomitant]
     Indication: PNEUMONIA
  13. CLARITHROMYCIN [Concomitant]
     Indication: BRONCHOPNEUMONIA
     Dosage: 1500 MG MILLIGRAM(S), DAILY DOSE
     Route: 042
     Dates: start: 201201, end: 201201
  14. AMLODIPIN [Concomitant]
     Indication: HYPERTENSION
     Dosage: 5 MG MILLIGRAM(S), DAILY DOSE
     Route: 048
     Dates: start: 201202, end: 20120422
  15. RAMIPRIL [Concomitant]
     Indication: HYPERTENSION
     Dosage: 5 MG MILLIGRAM(S), DAILY DOSE
     Route: 048
     Dates: start: 201202, end: 20120423
  16. ALLOPURINOL [Concomitant]
     Indication: BLOOD URIC ACID INCREASED
     Dosage: 300 MG MILLIGRAM(S), DAILY DOSE
     Route: 048
     Dates: start: 201202, end: 20120422
  17. MOXONIDINE [Concomitant]
     Indication: HYPERTENSION
     Dosage: 0.3 MG MILLIGRAM(S), DAILY DOSE
     Route: 048
     Dates: start: 201202
  18. HYDROCHLORTHIAZID [Concomitant]
     Indication: HYPERTENSION
     Dosage: 25 MG MILLIGRAM(S), DAILY DOSE
     Route: 048
     Dates: start: 201202
  19. CARBOPLATIN AND ETOPOSID [Concomitant]
     Indication: CHEMOTHERAPY
     Dosage: UNK, QM
     Route: 042
     Dates: start: 20120120, end: 20120615
  20. CARBOPLATIN AND ETOPOSID [Concomitant]
     Indication: LUNG NEOPLASM MALIGNANT
  21. ETOPOSIDE [Concomitant]
     Indication: CHEMOTHERAPY
     Dosage: UNK
     Route: 042
     Dates: start: 20120120, end: 20120615
  22. ETOPOSIDE [Concomitant]
     Indication: LUNG NEOPLASM MALIGNANT

REACTIONS (8)
  - Bone marrow failure [Recovering/Resolving]
  - Rapid correction of hyponatraemia [Recovered/Resolved]
  - Subileus [Recovered/Resolved]
  - Urogenital infection bacterial [Recovering/Resolving]
  - Confusional state [Recovering/Resolving]
  - Mucosal inflammation [Recovering/Resolving]
  - Balanitis [Recovering/Resolving]
  - Wrong technique in drug usage process [Unknown]
